FAERS Safety Report 9317620 (Version 1)
Quarter: 2013Q2

REPORT INFORMATION
  Report Type: Spontaneous
  Country: US (occurrence: US)
  Receive Date: 20130530
  Receipt Date: 20130530
  Transmission Date: 20140414
  Serious: No
  Sender: FDA-Public Use
  Company Number: US-GLAXOSMITHKLINE-A0974603A

PATIENT
  Age: 64 Year
  Sex: Male

DRUGS (11)
  1. VENTOLIN [Suspect]
     Indication: ASTHMA
     Dosage: 2PUFF AS REQUIRED
     Route: 055
  2. TIMOLOL MALEATE [Concomitant]
  3. METOPROLOL [Concomitant]
  4. UNKNOWN MEDICATION [Concomitant]
  5. ASPIRIN [Concomitant]
  6. HYDROCHLOROTHIAZIDE [Concomitant]
  7. SIMVASTATIN [Concomitant]
  8. OXYCODONE [Concomitant]
  9. CETIRIZINE [Concomitant]
  10. CLARINEX [Concomitant]
  11. FLONASE [Concomitant]

REACTIONS (2)
  - Foreign body [Unknown]
  - Oropharyngeal pain [Unknown]
